FAERS Safety Report 4954162-8 (Version None)
Quarter: 2006Q1

REPORT INFORMATION
  Report Type: 
  Country: None (occurrence: None)
  Receive Date: 20060321
  Receipt Date: 20060308
  Transmission Date: 20060701
  Serious: Yes (Other)
  Sender: FDA-Public Use
  Company Number: 13670

PATIENT
  Age: 64 Year
  Sex: Female

DRUGS (4)
  1. FLUOROURACIL [Suspect]
     Indication: COLON CANCER
     Dosage: 3 G ONCE IV
     Route: 042
     Dates: start: 20051122
  2. FOLINIC ACID [Suspect]
     Indication: COLON CANCER
     Dosage: 300 MG ONCE IV
     Route: 042
     Dates: start: 20051122
  3. NAVOBAN [Suspect]
     Dosage: 5 MG ONCE PO
     Route: 048
     Dates: start: 20051122
  4. ELOXATIN [Suspect]
     Indication: COLON CANCER
     Dosage: 100 MG ONCE IV
     Route: 042
     Dates: start: 20051122

REACTIONS (3)
  - ABDOMINAL PAIN [None]
  - DIZZINESS [None]
  - HOT FLUSH [None]
